FAERS Safety Report 9132438 (Version 1)
Quarter: 2013Q1

REPORT INFORMATION
  Report Type: Spontaneous
  Country: US (occurrence: US)
  Receive Date: 20130301
  Receipt Date: 20130301
  Transmission Date: 20140127
  Serious: Yes (Other)
  Sender: FDA-Public Use
  Company Number: US-ROCHE-1194685

PATIENT
  Age: 60 Year
  Sex: Male

DRUGS (4)
  1. BEVACIZUMAB [Suspect]
     Indication: OESOPHAGEAL CANCER METASTATIC
     Dosage: COMBINATION THERAPY
     Route: 065
  2. BEVACIZUMAB [Suspect]
     Dosage: MAINTENANCE THERAPY
     Route: 065
  3. CAPECITABINE [Suspect]
     Indication: OESOPHAGEAL CANCER METASTATIC
     Dosage: SECOND-LINE CHEMOTHERAPY
     Route: 065
  4. DOCETAXEL [Suspect]
     Indication: OESOPHAGEAL CANCER METASTATIC
     Dosage: SECOND-LINE CHEMOTHERAPY
     Route: 065

REACTIONS (4)
  - Pulmonary embolism [Unknown]
  - Hepatotoxicity [Unknown]
  - Palmar-plantar erythrodysaesthesia syndrome [Unknown]
  - Onycholysis [Unknown]
